FAERS Safety Report 7965533-X (Version None)
Quarter: 2011Q4

REPORT INFORMATION
  Report Type: 
  Country: None (occurrence: None)
  Receive Date: 20111208
  Receipt Date: 20111129
  Transmission Date: 20120403
  Serious: Yes (Disabling, Other)
  Sender: FDA-Public Use
  Company Number: US-JNJFOC-20111004644

PATIENT
  Sex: Male
  Weight: 86.18 kg

DRUGS (3)
  1. INVEGA SUSTENNA [Suspect]
     Indication: SCHIZOAFFECTIVE DISORDER
     Route: 030
  2. KLONOPIN [Concomitant]
     Indication: POST-TRAUMATIC STRESS DISORDER
     Route: 048
     Dates: start: 20100101
  3. ADDERALL 5 [Concomitant]
     Indication: ATTENTION DEFICIT/HYPERACTIVITY DISORDER
     Route: 048
     Dates: start: 20060101

REACTIONS (17)
  - FALL [None]
  - NEUROLEPTIC MALIGNANT SYNDROME [None]
  - PARALYSIS [None]
  - PARKINSONISM [None]
  - DYSTONIA [None]
  - DYSPHORIA [None]
  - CONVULSION [None]
  - HALLUCINATION [None]
  - SCIATICA [None]
  - NEURALGIA [None]
  - CARDIOVASCULAR DISORDER [None]
  - EPILEPSY [None]
  - HYPERTHERMIA [None]
  - NERVE COMPRESSION [None]
  - MUSCLE RIGIDITY [None]
  - CERVICAL VERTEBRAL FRACTURE [None]
  - TARDIVE DYSKINESIA [None]
